FAERS Safety Report 24161239 (Version 1)
Quarter: 2024Q3

REPORT INFORMATION
  Report Type: Spontaneous
  Country: IN (occurrence: IN)
  Receive Date: 20240801
  Receipt Date: 20240801
  Transmission Date: 20241017
  Serious: Yes (Death)
  Sender: RANBAXY
  Company Number: IN-SUN PHARMACEUTICAL INDUSTRIES LTD-2024R1-459579

PATIENT
  Age: 55 Year
  Sex: Female

DRUGS (2)
  1. EPINEPHRINE [Suspect]
     Active Substance: EPINEPHRINE
     Indication: Post pneumonectomy syndrome
     Dosage: 1 MILLIGRAM, REPEATED 11 TIMES
     Route: 065
  2. NOREPINEPHRINE [Suspect]
     Active Substance: NOREPINEPHRINE\NOREPINEPHRINE BITARTRATE
     Indication: Post pneumonectomy syndrome
     Dosage: 0.1 MICROGRAM/KILOGRAM
     Route: 065

REACTIONS (1)
  - Therapy non-responder [Fatal]
